FAERS Safety Report 10232614 (Version 1)
Quarter: 2014Q2

REPORT INFORMATION
  Report Type: Spontaneous
  Country: US (occurrence: None)
  Receive Date: 20140610
  Receipt Date: 20140610
  Transmission Date: 20141212
  Serious: Yes (Hospitalization)
  Sender: FDA-Public Use
  Company Number: FK201402220

PATIENT
  Age: 53 Year
  Sex: Male

DRUGS (9)
  1. FLUDARABINE (MANUFACTURER UNKNOWN) (FLUDARABINE PHOSPHATE) (FLUDARABINE PHOSPHATE) [Suspect]
     Indication: NON-HODGKIN^S LYMPHOMA
  2. FLUDARABINE (MANUFACTURER UNKNOWN) (FLUDARABINE PHOSPHATE) (FLUDARABINE PHOSPHATE) [Suspect]
     Indication: CYTOMEGALOVIRUS CHORIORETINITIS
  3. FLUDARABINE (MANUFACTURER UNKNOWN) (FLUDARABINE PHOSPHATE) (FLUDARABINE PHOSPHATE) [Suspect]
     Indication: CYTOMEGALOVIRUS INFECTION
  4. GANCICLOVIR FOR INJECTION (MANUFACTURER UNKNOWN) (GANCICLOVIR FOR INJECTION) GANCICLOVIR FOR INJECTION [Suspect]
     Indication: CYTOMEGALOVIRUS CHORIORETINITIS
  5. GANCICLOVIR FOR INJECTION (MANUFACTURER UNKNOWN) (GANCICLOVIR FOR INJECTION) GANCICLOVIR FOR INJECTION [Suspect]
     Indication: CYTOMEGALOVIRUS INFECTION
  6. GANCICLOVIR FOR INJECTION (MANUFACTURER UNKNOWN) (GANCICLOVIR FOR INJECTION) GANCICLOVIR FOR INJECTION [Suspect]
     Indication: NON-HODGKIN^S LYMPHOMA
  7. RITUXIMAB (RITUXIMAB) (RITUXIMAB) [Suspect]
     Indication: NON-HODGKIN^S LYMPHOMA
  8. RITUXIMAB (RITUXIMAB) (RITUXIMAB) [Suspect]
     Indication: CYTOMEGALOVIRUS CHORIORETINITIS
  9. RITUXIMAB (RITUXIMAB) (RITUXIMAB) [Suspect]
     Indication: CYTOMEGALOVIRUS INFECTION

REACTIONS (4)
  - Polyomavirus-associated nephropathy [None]
  - Renal failure acute [None]
  - Kidney fibrosis [None]
  - Renal tubular atrophy [None]
